FAERS Safety Report 9104333 (Version 2)
Quarter: 2013Q1

REPORT INFORMATION
  Report Type: Spontaneous
  Country: AU (occurrence: AU)
  Receive Date: 20130220
  Receipt Date: 20130221
  Transmission Date: 20140127
  Serious: Yes (Death)
  Sender: FDA-Public Use
  Company Number: PHHY2013AU016489

PATIENT
  Sex: Female

DRUGS (3)
  1. ACLASTA [Suspect]
     Dosage: UNK
     Route: 042
     Dates: start: 20091208
  2. ACLASTA [Suspect]
     Dosage: UNK
     Route: 042
     Dates: start: 20110110
  3. ACLASTA [Suspect]
     Dosage: UNK
     Route: 042
     Dates: start: 20120222

REACTIONS (1)
  - Death [Fatal]
